FAERS Safety Report 9026360 (Version 3)
Quarter: 2013Q1

REPORT INFORMATION
  Report Type: Spontaneous
  Country: JP (occurrence: None)
  Receive Date: 20121227
  Receipt Date: 20130103
  Transmission Date: 20140127
  Serious: Yes (Other)
  Sender: FDA-Public Use
  Company Number: 2012SP004951

PATIENT
  Age: 17 Year
  Sex: Female

DRUGS (7)
  1. IFOSFAMIDE [Suspect]
     Indication: BONE SARCOMA
     Route: 042
  2. METHOTREXATE (METHOTREXATE) [Suspect]
     Indication: BONE SARCOMA
     Route: 042
  3. ADRIAMYCIN [Suspect]
     Indication: BONE SARCOMA
     Route: 042
  4. VINCRISTINE [Suspect]
     Indication: BONE SARCOMA
     Route: 042
  5. BLEOMYCIN [Suspect]
     Indication: BONE SARCOMA
  6. CYCLOPHOSPHAMIDE [Suspect]
     Indication: BONE SARCOMA
  7. DACTINOMYCIN [Suspect]
     Indication: BONE SARCOMA
     Route: 042

REACTIONS (3)
  - Renal impairment [None]
  - Lung adenocarcinoma [None]
  - Second primary malignancy [None]
